FAERS Safety Report 17734670 (Version 3)
Quarter: 2020Q2

REPORT INFORMATION
  Report Type: Spontaneous
  Country: US (occurrence: US)
  Receive Date: 20200501
  Receipt Date: 20200521
  Transmission Date: 20200714
  Serious: Yes (Hospitalization)
  Sender: FDA-Public Use
  Company Number: US-PFIZER INC-2020174589

PATIENT
  Age: 78 Year
  Sex: Female
  Weight: 67.13 kg

DRUGS (1)
  1. CHANTIX [Suspect]
     Active Substance: VARENICLINE TARTRATE
     Indication: SMOKING CESSATION THERAPY
     Dosage: UNK, 1X/DAY
     Route: 048

REACTIONS (10)
  - Accident [Recovered/Resolved with Sequelae]
  - Stress [Unknown]
  - Drug ineffective [Not Recovered/Not Resolved]
  - Malaise [Unknown]
  - Coma [Recovered/Resolved with Sequelae]
  - Memory impairment [Unknown]
  - Speech disorder [Unknown]
  - Dry mouth [Unknown]
  - Body height decreased [Unknown]
  - Injury [Unknown]

NARRATIVE: CASE EVENT DATE: 20180704
